FAERS Safety Report 9431554 (Version 2)
Quarter: 2013Q3

REPORT INFORMATION
  Report Type: Report from Study
  Country: US (occurrence: US)
  Receive Date: 20130731
  Receipt Date: 20130816
  Transmission Date: 20140515
  Serious: Yes (Death)
  Sender: FDA-Public Use
  Company Number: GXBR2013US001465

PATIENT
  Sex: Male
  Weight: 78.91 kg

DRUGS (1)
  1. ENOXAPARIN SODIUM [Suspect]
     Dosage: 100 MG, QD
     Route: 058
     Dates: start: 20130426

REACTIONS (1)
  - Prostate cancer metastatic [Fatal]
